FAERS Safety Report 18244249 (Version 3)
Quarter: 2020Q3

REPORT INFORMATION
  Report Type: Spontaneous
  Country: DE (occurrence: DE)
  Receive Date: 20200908
  Receipt Date: 20200922
  Transmission Date: 20201103
  Serious: Yes (Death, Hospitalization, Other)
  Sender: FDA-Public Use
  Company Number: DE-GILEAD-2020-0493862

PATIENT
  Age: 72 Year
  Sex: Male
  Weight: 87 kg

DRUGS (17)
  1. MIRTAZAPINE. [Concomitant]
     Active Substance: MIRTAZAPINE
  2. MOVICOL PLAIN [Concomitant]
     Active Substance: POLYETHYLENE GLYCOL 3350\POTASSIUM CHLORIDE\SODIUM BICARBONATE\SODIUM CHLORIDE
  3. COTRIM FORTE [Concomitant]
     Active Substance: SULFAMETHOXAZOLE\TRIMETHOPRIM
  4. PANTOPRAZOL [PANTOPRAZOLE] [Concomitant]
     Active Substance: PANTOPRAZOLE
  5. YESCARTA [Suspect]
     Active Substance: AXICABTAGENE CILOLEUCEL
     Indication: DIFFUSE LARGE B-CELL LYMPHOMA
     Dosage: UNK
     Route: 042
     Dates: start: 20200113, end: 20200113
  6. HYDROCORTISONE. [Concomitant]
     Active Substance: HYDROCORTISONE
  7. SUMMAVIT [VITAMINS NOS] [Concomitant]
  8. DYNEXAN [LIDOCAINE HYDROCHLORIDE] [Concomitant]
  9. ENDOXAN [CYCLOPHOSPHAMIDE] [Concomitant]
     Active Substance: CYCLOPHOSPHAMIDE
     Indication: BONE MARROW CONDITIONING REGIMEN
     Dosage: 1000 MG, QD
     Route: 042
     Dates: start: 20200108, end: 20200110
  10. TORSEMIDE. [Concomitant]
     Active Substance: TORSEMIDE
  11. CLEXANE [Concomitant]
     Active Substance: ENOXAPARIN SODIUM
  12. ASA [Concomitant]
     Active Substance: ASPIRIN
  13. RAMIPRIL. [Concomitant]
     Active Substance: RAMIPRIL
  14. FLUDARABINE [Concomitant]
     Active Substance: FLUDARABINE PHOSPHATE
     Indication: BONE MARROW CONDITIONING REGIMEN
     Dosage: 30 MG, QD
     Route: 042
     Dates: start: 20200108, end: 20200110
  15. FOLSAN [Concomitant]
     Active Substance: FOLIC ACID
  16. LEVETIRACETAM. [Concomitant]
     Active Substance: LEVETIRACETAM
  17. ACYCLOVIR [ACICLOVIR] [Concomitant]
     Active Substance: ACYCLOVIR

REACTIONS (12)
  - Pseudomonal sepsis [Unknown]
  - Immune effector cell-associated neurotoxicity syndrome [Recovered/Resolved]
  - Cytokine release syndrome [Unknown]
  - Intestinal perforation [Fatal]
  - Pancytopenia [Unknown]
  - Decubitus ulcer [Unknown]
  - Hypertension [Unknown]
  - Peritonitis [Not Recovered/Not Resolved]
  - Ileus [Recovered/Resolved]
  - Septic shock [Fatal]
  - Cytokine release syndrome [Unknown]
  - Herpes simplex reactivation [Unknown]

NARRATIVE: CASE EVENT DATE: 201902
